FAERS Safety Report 18968417 (Version 1)
Quarter: 2021Q1

REPORT INFORMATION
  Report Type: Spontaneous
  Country: DE (occurrence: DE)
  Receive Date: 20210304
  Receipt Date: 20210304
  Transmission Date: 20210420
  Serious: Yes (Hospitalization)
  Sender: FDA-Public Use
  Company Number: DE-BAUSCH-BL-2021-006489

PATIENT
  Age: 15 Month
  Sex: Female

DRUGS (3)
  1. BRIMONIDINE TARTRATE. [Suspect]
     Active Substance: BRIMONIDINE TARTRATE
     Indication: ACCIDENTAL DEVICE INGESTION BY A CHILD
     Route: 048
     Dates: start: 20190312, end: 20190312
  2. BRINZOLAMID [Suspect]
     Active Substance: BRINZOLAMIDE
     Indication: ACCIDENTAL DEVICE INGESTION BY A CHILD
     Route: 048
     Dates: start: 20190312, end: 20190312
  3. BISULEPIN [Suspect]
     Active Substance: BISULEPIN
     Indication: ACCIDENTAL DEVICE INGESTION BY A CHILD
     Dosage: 0.5 (UNSPECIFIED UNITS)
     Route: 048
     Dates: start: 20190312, end: 20190312

REACTIONS (4)
  - Hypotonia [Recovered/Resolved]
  - Somnolence [Recovered/Resolved]
  - Accidental exposure to product by child [Recovered/Resolved]
  - Product storage error [Recovered/Resolved]

NARRATIVE: CASE EVENT DATE: 20190312
